FAERS Safety Report 8949918 (Version 2)
Quarter: 2013Q2

REPORT INFORMATION
  Report Type: Spontaneous
  Country: US (occurrence: US)
  Receive Date: 20121205
  Receipt Date: 20130411
  Transmission Date: 20140414
  Serious: No
  Sender: FDA-Public Use
  Company Number: US-009507513-2012SP027875

PATIENT
  Age: 16 Year
  Sex: Female
  Weight: 63.5 kg

DRUGS (1)
  1. IMPLANON [Suspect]
     Indication: CONTRACEPTION
     Dosage: 1 DF, UNK
     Route: 058
     Dates: start: 20111201

REACTIONS (8)
  - Unintended pregnancy [Unknown]
  - Metrorrhagia [Unknown]
  - Implant site fibrosis [Unknown]
  - Implant site scar [Unknown]
  - Medical device complication [Unknown]
  - Device difficult to use [Unknown]
  - Device dislocation [Unknown]
  - Device difficult to use [Unknown]
